FAERS Safety Report 6696853-7 (Version None)
Quarter: 2010Q2

REPORT INFORMATION
  Report Type: 
  Country: None (occurrence: None)
  Receive Date: 20100422
  Receipt Date: 20100415
  Transmission Date: 20101027
  Serious: Yes (Other)
  Sender: FDA-Public Use
  Company Number: TUK2010A00054

PATIENT
  Age: 54 Year
  Sex: Female

DRUGS (4)
  1. ACTOS [Suspect]
     Indication: DIABETES MELLITUS
     Dosage: (15 MG) ORAL
     Route: 048
     Dates: start: 20091104, end: 20100320
  2. METFORMIN HCL [Concomitant]
  3. NAPROXEN [Concomitant]
  4. SIMVASTATIN [Concomitant]

REACTIONS (3)
  - ARTHRALGIA [None]
  - HYPOAESTHESIA [None]
  - JOINT SWELLING [None]
